FAERS Safety Report 17881413 (Version 1)
Quarter: 2020Q2

REPORT INFORMATION
  Report Type: Spontaneous
  Country: US (occurrence: US)
  Receive Date: 20200610
  Receipt Date: 20200610
  Transmission Date: 20200714
  Serious: No
  Sender: FDA-Public Use
  Company Number: US-COLLEGIUM PHARMACEUTICAL, INC.-2019CGM00136

PATIENT
  Age: 52 Year
  Sex: Female

DRUGS (1)
  1. XTAMPZA ER [Suspect]
     Active Substance: OXYCODONE
     Dosage: UNK UNK, 2X/DAY
     Dates: start: 20190314, end: 2019

REACTIONS (4)
  - Chest pain [Recovered/Resolved]
  - Product substitution issue [Recovered/Resolved]
  - Palpitations [Recovered/Resolved]
  - Nausea [Recovered/Resolved]

NARRATIVE: CASE EVENT DATE: 20190314
